FAERS Safety Report 22148873 (Version 1)
Quarter: 2023Q1

REPORT INFORMATION
  Report Type: Spontaneous
  Country: US (occurrence: US)
  Receive Date: 20230328
  Receipt Date: 20230328
  Transmission Date: 20230418
  Serious: No
  Sender: FDA-Public Use
  Company Number: US-CTI BIOPHARMA-2022US03225

PATIENT

DRUGS (1)
  1. VONJO [Suspect]
     Active Substance: PACRITINIB
     Indication: Polycythaemia vera
     Dosage: 100 MG, BID
     Route: 048
     Dates: start: 20221111

REACTIONS (7)
  - Blood uric acid increased [Unknown]
  - Gout [Unknown]
  - Asthenia [Unknown]
  - Spleen disorder [Unknown]
  - Abdominal pain upper [Unknown]
  - Food aversion [Unknown]
  - Nausea [Unknown]
